FAERS Safety Report 5364220-4 (Version None)
Quarter: 2007Q2

REPORT INFORMATION
  Report Type: 
  Country: None (occurrence: None)
  Receive Date: 20070620
  Receipt Date: 20070608
  Transmission Date: 20071010
  Serious: Yes (Hospitalization, Other)
  Sender: FDA-Public Use
  Company Number: US-PFIZER INC-2007047242

PATIENT
  Sex: Male
  Weight: 76.2 kg

DRUGS (4)
  1. NEURONTIN [Suspect]
     Indication: NEUROPATHY
     Dosage: DAILY DOSE:2700MG
  2. DRUG, UNSPECIFIED [Concomitant]
     Dosage: DAILY DOSE:.75MG
  3. AGGRENOX [Concomitant]
  4. ACCUPRIL [Concomitant]
     Dosage: DAILY DOSE:10MG

REACTIONS (3)
  - CHONDROPATHY [None]
  - OSTEOPOROSIS [None]
  - PAIN [None]
